FAERS Safety Report 7237898-8 (Version None)
Quarter: 2011Q1

REPORT INFORMATION
  Report Type: 
  Country: None (occurrence: None)
  Receive Date: 20110121
  Receipt Date: 20110113
  Transmission Date: 20110831
  Serious: Yes (Life-Threatening, Hospitalization)
  Sender: FDA-Public Use
  Company Number: FR-PFIZER INC-2010179745

PATIENT
  Age: 56 Year
  Sex: Male
  Weight: 80 kg

DRUGS (8)
  1. OXYCODONE HCL [Concomitant]
     Dosage: UNK
     Dates: start: 20101029
  2. OXYCONTIN [Concomitant]
     Dosage: 50 MG, 2X/DAY
  3. TEMSIROLIMUS [Suspect]
     Indication: RENAL CANCER METASTATIC
     Dosage: 25 MG, 1X/WEEK
     Route: 042
     Dates: start: 20101001, end: 20101220
  4. LYRICA [Concomitant]
     Dosage: 75 MG, 2X/DAY
  5. MOVICOL [Concomitant]
     Indication: CONSTIPATION
  6. SODIUM BICARBONATE [Concomitant]
     Indication: OESOPHAGITIS
  7. FUNGIZONE [Concomitant]
     Indication: OESOPHAGITIS
  8. MICONAZOLE [Concomitant]
     Dosage: UNK
     Dates: start: 20101008

REACTIONS (1)
  - PNEUMONIA LEGIONELLA [None]
